FAERS Safety Report 12892321 (Version 1)
Quarter: 2016Q4

REPORT INFORMATION
  Report Type: Spontaneous
  Country: US (occurrence: US)
  Receive Date: 20161026
  Receipt Date: 20161026
  Transmission Date: 20170207
  Serious: Yes (Hospitalization)
  Sender: FDA-Public Use
  Company Number: None

PATIENT
  Age: 58 Year
  Sex: Female
  Weight: 97 kg

DRUGS (2)
  1. MEMANTINE HYDROCHLORIDE. [Suspect]
     Active Substance: MEMANTINE HYDROCHLORIDE
     Dates: end: 20161015
  2. LOVONOX [Concomitant]

REACTIONS (3)
  - Fall [None]
  - Cerebral haemorrhage [None]
  - Deep vein thrombosis [None]

NARRATIVE: CASE EVENT DATE: 20161015
